FAERS Safety Report 22093013 (Version 1)
Quarter: 2023Q1

REPORT INFORMATION
  Report Type: Spontaneous
  Country: US (occurrence: US)
  Receive Date: 20230314
  Receipt Date: 20230314
  Transmission Date: 20230418
  Serious: Yes (Life-Threatening, Hospitalization, Other)
  Sender: FDA-Public Use
  Company Number: US-002147023-NVSC2023US057918

PATIENT
  Sex: Male

DRUGS (1)
  1. ENTRESTO [Suspect]
     Active Substance: SACUBITRIL\VALSARTAN
     Indication: Product used for unknown indication
     Dosage: UNK
     Route: 065

REACTIONS (6)
  - Feeling abnormal [Unknown]
  - Renal impairment [Recovering/Resolving]
  - Hypotension [Recovered/Resolved]
  - Cough [Recovered/Resolved]
  - Myocardial infarction [Unknown]
  - Lung carcinoma cell type unspecified stage III [Unknown]
